FAERS Safety Report 8599892 (Version 2)
Quarter: 2014Q1

REPORT INFORMATION
  Report Type: Spontaneous
  Country: US (occurrence: None)
  Receive Date: 20120323
  Receipt Date: 20130305
  Transmission Date: 20141002
  Serious: Yes (Other)
  Sender: FDA-Public Use
  Company Number: 163-21880-11113000

PATIENT
  Age: 89 Year
  Sex: Female
  Weight: 65.77 kg

DRUGS (10)
  1. REVLIMID [Suspect]
     Indication: PLASMA CELL MYELOMA
     Dosage: 25 MG, 1 IN 1 D, PO
     Route: 048
     Dates: start: 20111114, end: 20111114
  2. ADVIL (IBUPROFEN) (UNKNOWN) [Concomitant]
  3. ALLOPURINOL [Concomitant]
  4. ASPIRIN [Concomitant]
  5. DEXAMETHASONE [Concomitant]
  6. ENALAPRIL MALEATE [Concomitant]
  7. HYDRALAZINE HYDROCHLORIDE [Concomitant]
  8. HYDROCHLOROTHIAZIDE [Concomitant]
  9. MAGNESIUM (MAGNESIUM) (UNKNOWN) [Concomitant]
  10. POTASSIUM (POTASSIUM) (UNKNOWN) [Concomitant]

REACTIONS (4)
  - Fatigue [None]
  - Abdominal discomfort [None]
  - Vomiting [None]
  - Chills [None]
